FAERS Safety Report 21682358 (Version 2)
Quarter: 2022Q4

REPORT INFORMATION
  Report Type: Report from Study
  Country: PL (occurrence: None)
  Receive Date: 20221205
  Receipt Date: 20221221
  Transmission Date: 20230112
  Serious: Yes (Hospitalization)
  Sender: FDA-Public Use
  Company Number: PL-ROCHE-3228345

PATIENT
  Age: 73 Year
  Sex: Female
  Weight: 70 kg

DRUGS (8)
  1. RITUXIMAB [Suspect]
     Active Substance: RITUXIMAB
     Indication: Chronic lymphocytic leukaemia
     Dosage: 16/NOV/2022, THE PATIENT RECEIVED LAST DOSE(500 MG/M2 OF RITUXIMAB PRIOR TO SAE ONSET.
     Route: 041
     Dates: start: 20220518
  2. VENETOCLAX [Suspect]
     Active Substance: VENETOCLAX
     Indication: Chronic lymphocytic leukaemia
     Dosage: 06/NOV/2022, THE PATIENT RECEIVED LAST DOSE OF VENETOCLAX PRIOR TO SAE ONSET.
     Route: 048
     Dates: start: 20220413, end: 20221106
  3. MONTELUKAST SODIUM [Concomitant]
     Active Substance: MONTELUKAST SODIUM
     Dates: start: 20151023
  4. TELMISARTAN [Concomitant]
     Active Substance: TELMISARTAN
     Dates: start: 20140603
  5. INDAPAMIDE [Concomitant]
     Active Substance: INDAPAMIDE
     Dates: start: 20160603
  6. ASARIS [Concomitant]
  7. BISOPROLOL FUMARATE [Concomitant]
     Active Substance: BISOPROLOL FUMARATE
     Dates: start: 20160603
  8. ALLOPURINOL [Concomitant]
     Active Substance: ALLOPURINOL
     Dates: start: 20210317

REACTIONS (1)
  - Pneumonia [Recovered/Resolved]

NARRATIVE: CASE EVENT DATE: 20221116
